FAERS Safety Report 6576055-5 (Version None)
Quarter: 2010Q1

REPORT INFORMATION
  Report Type: 
  Country: None (occurrence: None)
  Receive Date: 20100209
  Receipt Date: 20100128
  Transmission Date: 20100710
  Serious: Yes (Other)
  Sender: FDA-Public Use
  Company Number: PHHY2010JP03273

PATIENT
  Age: 72 Year
  Sex: Male

DRUGS (2)
  1. ZOMETA [Suspect]
     Dosage: UNK
     Route: 042
     Dates: start: 20070501, end: 20080301
  2. RADIOTHERAPY [Concomitant]
     Indication: PROSTATE CANCER

REACTIONS (6)
  - BONE LESION EXCISION [None]
  - BREATH ODOUR [None]
  - LOOSE TOOTH [None]
  - OSTEONECROSIS [None]
  - PURULENCE [None]
  - TOOTH EXTRACTION [None]
